FAERS Safety Report 6653216-8 (Version None)
Quarter: 2010Q1

REPORT INFORMATION
  Report Type: 
  Country: None (occurrence: None)
  Receive Date: 20100326
  Receipt Date: 20100317
  Transmission Date: 20100710
  Serious: Yes (Other)
  Sender: FDA-Public Use
  Company Number: FR-BAXTER-2009BH001840

PATIENT
  Sex: Male

DRUGS (5)
  1. RECOMBINATE [Suspect]
     Indication: FACTOR VIII DEFICIENCY
     Route: 042
     Dates: start: 19980123
  2. ANTIHEMOPHILIC FACTOR (HUMAN) [Suspect]
     Indication: FACTOR VIII DEFICIENCY
     Route: 042
     Dates: start: 19600101, end: 19850101
  3. ANTIHEMOPHILIC FACTOR (HUMAN) [Suspect]
     Route: 042
     Dates: start: 19890101
  4. KRYOBULIN S [Suspect]
     Indication: FACTOR VIII DEFICIENCY
     Route: 065
     Dates: start: 19850101
  5. ANTIHEMOPHILIC FACTOR (HUMAN) [Suspect]
     Indication: FACTOR VIII DEFICIENCY
     Route: 065
     Dates: start: 19850101

REACTIONS (4)
  - HEPATITIS A [None]
  - HEPATITIS B [None]
  - HEPATITIS C [None]
  - HIV INFECTION [None]
